FAERS Safety Report 6063903-0 (Version None)
Quarter: 2009Q1

REPORT INFORMATION
  Report Type: 
  Country: None (occurrence: None)
  Receive Date: 20090204
  Receipt Date: 20090127
  Transmission Date: 20090719
  Serious: Yes (Hospitalization)
  Sender: FDA-Public Use
  Company Number: FR-ABBOTT-09P-056-0500110-00

PATIENT
  Sex: Female

DRUGS (4)
  1. DEPAKENE [Suspect]
     Indication: EPILEPSY
     Route: 048
     Dates: start: 19830101
  2. TEGRETOL [Suspect]
     Indication: EPILEPSY
     Route: 048
     Dates: start: 19830101
  3. URBANYL [Suspect]
     Indication: EPILEPSY
     Route: 048
     Dates: start: 19830101
  4. STEROID [Concomitant]
     Indication: OSTEOARTHRITIS

REACTIONS (4)
  - ASTHENIA [None]
  - BLOOD THYROID STIMULATING HORMONE DECREASED [None]
  - GOITRE [None]
  - THYROXINE DECREASED [None]
